FAERS Safety Report 7210968-6 (Version None)
Quarter: 2011Q1

REPORT INFORMATION
  Report Type: 
  Country: None (occurrence: None)
  Receive Date: 20110105
  Receipt Date: 20101231
  Transmission Date: 20110831
  Serious: Yes (Other)
  Sender: FDA-Public Use
  Company Number: A0902543A

PATIENT
  Sex: Female

DRUGS (1)
  1. PAXIL [Suspect]
     Indication: PRODUCT USED FOR UNKNOWN INDICATION
     Route: 065

REACTIONS (6)
  - DEPRESSION [None]
  - LOSS OF CONSCIOUSNESS [None]
  - WITHDRAWAL SYNDROME [None]
  - PARAESTHESIA [None]
  - ADVERSE EVENT [None]
  - IMPAIRED DRIVING ABILITY [None]
